FAERS Safety Report 22266876 (Version 1)
Quarter: 2023Q2

REPORT INFORMATION
  Report Type: Spontaneous
  Country: FR (occurrence: FR)
  Receive Date: 20230428
  Receipt Date: 20230428
  Transmission Date: 20230722
  Serious: Yes (Hospitalization)
  Sender: FDA-Public Use
  Company Number: None

PATIENT
  Age: 65 Year
  Sex: Male

DRUGS (2)
  1. DOXYCYCLINE [Suspect]
     Active Substance: DOXYCYCLINE
     Indication: Osteitis
     Dosage: 200 MILLIGRAM
     Route: 048
     Dates: start: 20230324
  2. CLINDAMYCIN [Suspect]
     Active Substance: CLINDAMYCIN
     Indication: Osteitis
     Dosage: 1800 MILLIGRAM, QD (600MG 3/DAY)
     Route: 048
     Dates: start: 20230324

REACTIONS (2)
  - Pruritus [Not Recovered/Not Resolved]
  - Rash morbilliform [Not Recovered/Not Resolved]
